FAERS Safety Report 13361098 (Version 4)
Quarter: 2017Q2

REPORT INFORMATION
  Report Type: Spontaneous
  Country: DE (occurrence: DE)
  Receive Date: 20170322
  Receipt Date: 20170605
  Transmission Date: 20170830
  Serious: Yes (Death, Other)
  Sender: FDA-Public Use
  Company Number: DE-B.I. PHARMACEUTICALS,INC./RIDGEFIELD-2017-BI-015844

PATIENT
  Age: 67 Year
  Sex: Male
  Weight: 90 kg

DRUGS (6)
  1. GILOTRIF [Suspect]
     Active Substance: AFATINIB
     Indication: EGFR GENE MUTATION
  2. AMLODIPIN [Concomitant]
     Active Substance: AMLODIPINE BESYLATE
     Indication: HYPERTENSION
     Route: 065
  3. VALSARTAN. [Concomitant]
     Active Substance: VALSARTAN
     Indication: HYPERTENSION
     Route: 065
  4. CEFUROXIM [Suspect]
     Active Substance: CEFUROXIME
     Indication: INFLUENZA
     Route: 065
  5. HCT [Concomitant]
     Active Substance: HYDROCHLOROTHIAZIDE
     Indication: HYPERTENSION
     Route: 065
  6. GILOTRIF [Suspect]
     Active Substance: AFATINIB
     Indication: NON-SMALL CELL LUNG CANCER
     Route: 048
     Dates: start: 201608, end: 20170123

REACTIONS (15)
  - Hepatic vein thrombosis [Fatal]
  - Hepatic failure [Unknown]
  - Hepatic necrosis [Unknown]
  - Hypokalaemia [Unknown]
  - Infection [Unknown]
  - Hepatic infarction [Unknown]
  - Influenza [Unknown]
  - Diarrhoea [Unknown]
  - Dehydration [Unknown]
  - Prerenal failure [Unknown]
  - Body temperature increased [Unknown]
  - Vomiting [Unknown]
  - Oliguria [Unknown]
  - Hyponatraemia [Unknown]
  - Megacolon [Unknown]

NARRATIVE: CASE EVENT DATE: 20170113
